FAERS Safety Report 13151558 (Version 1)
Quarter: 2017Q1

REPORT INFORMATION
  Report Type: Spontaneous
  Country: CN (occurrence: CN)
  Receive Date: 20170125
  Receipt Date: 20170125
  Transmission Date: 20170428
  Serious: Yes (Other)
  Sender: FDA-Public Use
  Company Number: CN-ROCHE-1878771

PATIENT
  Age: 61 Year
  Sex: Female

DRUGS (14)
  1. TAXOL [Suspect]
     Active Substance: PACLITAXEL
     Dosage: FOR SECOND TIME AS THIRD LINE TREATMENT
     Route: 065
  2. TRASTUZUMAB [Suspect]
     Active Substance: TRASTUZUMAB
     Indication: GASTRIC CANCER
     Dosage: THIRD LINE TREATMENT: FOR FIRST TIME
     Route: 042
     Dates: start: 20141027, end: 20141027
  3. TRASTUZUMAB [Suspect]
     Active Substance: TRASTUZUMAB
     Dosage: SEQUENTIAL THIRD LINE TREATMENT
     Route: 042
  4. TAXOL [Suspect]
     Active Substance: PACLITAXEL
     Dosage: FOR THIRD AND FOURTH TIME AS THIRD LINE TREATMENT
     Route: 065
  5. APATINIB [Concomitant]
     Route: 065
  6. TRASTUZUMAB [Suspect]
     Active Substance: TRASTUZUMAB
     Route: 042
     Dates: start: 20150205, end: 20150923
  7. TS-1 [Suspect]
     Active Substance: GIMERACIL\OTERACIL\TEGAFUR
     Indication: GASTRIC CANCER
     Dosage: D2-D15
     Route: 065
  8. APATINIB [Concomitant]
     Route: 065
  9. OXALIPLATIN. [Concomitant]
     Active Substance: OXALIPLATIN
     Indication: GASTRIC CANCER
     Dosage: D-1
     Route: 065
     Dates: start: 20130816
  10. TAXOL [Suspect]
     Active Substance: PACLITAXEL
     Dosage: FOR FIRST TIME AS THIRD LINE TREATMENT
     Route: 065
     Dates: start: 20141027, end: 20141027
  11. APATINIB [Concomitant]
     Route: 048
     Dates: start: 20150205, end: 20150214
  12. APATINIB [Concomitant]
     Route: 065
     Dates: start: 20150503
  13. TAXOL [Suspect]
     Active Substance: PACLITAXEL
     Indication: GASTRIC CANCER
     Dosage: D-1; SIX CYCLES OF ADVANCED FIRST LINE TREATMENT
     Route: 065
     Dates: start: 201209, end: 201303
  14. TS-1 [Suspect]
     Active Substance: GIMERACIL\OTERACIL\TEGAFUR
     Dosage: D2-D15; THIRD LINE TREATMENT
     Route: 065

REACTIONS (3)
  - Bone marrow failure [Unknown]
  - Drug-induced liver injury [Recovered/Resolved]
  - Herpes zoster [Unknown]

NARRATIVE: CASE EVENT DATE: 2014
